FAERS Safety Report 6688989 (Version 3)
Quarter: 2015Q4

REPORT INFORMATION
  Report Type: Spontaneous
  Country: GB (occurrence: GB)
  Receive Date: 20080702
  Receipt Date: 20151106
  Transmission Date: 20160305
  Serious: Yes (Other)
  Sender: FDA-Public Use
  Company Number: GB-BRISTOL-MYERS SQUIBB COMPANY-14245021

PATIENT
  Age: 32 Year
  Sex: Female
  Weight: 57 kg

DRUGS (3)
  1. TRUVADA [Concomitant]
     Active Substance: EMTRICITABINE\TENOFOVIR DISOPROXIL FUMARATE
     Indication: PRODUCT USED FOR UNKNOWN INDICATION
     Dosage: 1 DF, UNK
     Route: 048
  2. SUSTIVA [Suspect]
     Active Substance: EFAVIRENZ
     Indication: HIV TEST
     Dosage: 600 MG, QD
     Route: 048
  3. IMPLANON [Interacting]
     Active Substance: ETONOGESTREL
     Indication: CONTRACEPTION
     Dosage: UNK
     Route: 065
     Dates: start: 2006

REACTIONS (3)
  - Maternal exposure during pregnancy [Unknown]
  - Pregnancy with implant contraceptive [Unknown]
  - Drug interaction [Unknown]

NARRATIVE: CASE EVENT DATE: 200805
